FAERS Safety Report 14565500 (Version 1)
Quarter: 2018Q1

REPORT INFORMATION
  Report Type: Spontaneous
  Country: CN (occurrence: CN)
  Receive Date: 20180223
  Receipt Date: 20180223
  Transmission Date: 20180509
  Serious: Yes (Death, Other)
  Sender: FDA-Public Use
  Company Number: CN-CIPLA LTD.-2018CN05824

PATIENT

DRUGS (9)
  1. AMIODARONE [Suspect]
     Active Substance: AMIODARONE
     Dosage: UNK
     Route: 048
  2. GEFITINIB. [Suspect]
     Active Substance: GEFITINIB
     Indication: ADENOSQUAMOUS CELL LUNG CANCER
     Dosage: UNK
     Route: 065
  3. LIDOCAINE. [Suspect]
     Active Substance: LIDOCAINE
     Indication: VENTRICULAR TACHYCARDIA
     Dosage: UNK
     Route: 042
  4. OSIMERTINIB. [Suspect]
     Active Substance: OSIMERTINIB
     Indication: CHEMOTHERAPY
     Dosage: UNK
     Route: 065
  5. OSIMERTINIB. [Suspect]
     Active Substance: OSIMERTINIB
     Indication: LUNG CANCER METASTATIC
  6. GEMCITABINE [Suspect]
     Active Substance: GEMCITABINE\GEMCITABINE HYDROCHLORIDE
     Indication: ADENOSQUAMOUS CELL LUNG CANCER
     Dosage: UNK, FOUR CYCLES
     Route: 065
     Dates: start: 201404
  7. AMIODARONE [Suspect]
     Active Substance: AMIODARONE
     Indication: VENTRICULAR TACHYCARDIA
     Dosage: UNK
     Route: 042
  8. CISPLATIN. [Suspect]
     Active Substance: CISPLATIN
     Indication: ADENOSQUAMOUS CELL LUNG CANCER
     Dosage: FOUR CYCLES
     Route: 065
     Dates: start: 201404
  9. GEFITINIB. [Suspect]
     Active Substance: GEFITINIB
     Indication: METASTASIS

REACTIONS (6)
  - Metastases to heart [Unknown]
  - Pericardial effusion [Unknown]
  - Drug ineffective [Unknown]
  - Ventricular fibrillation [Fatal]
  - Malignant neoplasm progression [Fatal]
  - Adenosquamous cell lung cancer [Unknown]

NARRATIVE: CASE EVENT DATE: 201502
